FAERS Safety Report 26185920 (Version 1)
Quarter: 2025Q4

REPORT INFORMATION
  Report Type: Spontaneous
  Country: US (occurrence: US)
  Receive Date: 20251222
  Receipt Date: 20251222
  Transmission Date: 20260118
  Serious: No
  Sender: UROGEN PHARMA
  Company Number: US-UROGEN PHARMA LTD.-2025-UGN-000215

PATIENT

DRUGS (5)
  1. ZUSDURI [Suspect]
     Active Substance: MITOMYCIN
     Indication: Product used for unknown indication
     Dosage: UNK, (INSTILLATION)
     Route: 043
     Dates: start: 2025, end: 2025
  2. ZUSDURI [Suspect]
     Active Substance: MITOMYCIN
     Dosage: UNK, (INSTILLATION)
     Route: 043
     Dates: start: 2025, end: 2025
  3. ZUSDURI [Suspect]
     Active Substance: MITOMYCIN
     Dosage: UNK, (INSTILLATION)
     Route: 043
     Dates: start: 2025, end: 2025
  4. ZUSDURI [Suspect]
     Active Substance: MITOMYCIN
     Dosage: UNK, (INSTILLATION)
     Route: 043
     Dates: start: 20251015, end: 20251015
  5. ZUSDURI [Suspect]
     Active Substance: MITOMYCIN
     Dosage: UNK, (INSTILLATION)
     Route: 043
     Dates: start: 20251022, end: 20251022

REACTIONS (1)
  - Bladder spasm [Recovered/Resolved]

NARRATIVE: CASE EVENT DATE: 20251022
